FAERS Safety Report 9237865 (Version 1)
Quarter: 2013Q2

REPORT INFORMATION
  Report Type: Spontaneous
  Country: BR (occurrence: None)
  Receive Date: 20130415
  Receipt Date: 20130415
  Transmission Date: 20140414
  Serious: Yes (Hospitalization, Other)
  Sender: FDA-Public Use
  Company Number: 2013-001058

PATIENT
  Age: 81 Year
  Sex: Female
  Weight: 89 kg

DRUGS (8)
  1. ACTONEL (RISEDRONATE SODIUM) TABLET, 150MG [Suspect]
     Indication: OSTEOARTHRITIS
     Route: 048
     Dates: start: 2010
  2. ANTIBIOTICS [Concomitant]
  3. OMEPRAZOLE (OMEPRAZOLE) [Concomitant]
  4. RIVOTRIL (CLONAZEPAM) [Concomitant]
  5. ALL OTHER THERAPEUTIC PRODUCTS [Concomitant]
  6. ALL OTHER THERAPEUTIC PRODUCTS [Concomitant]
  7. CONCOR (BISOPROLOL FUMARATE) [Concomitant]
  8. ALL OTHER THERAPEUTIC PRODUCTS [Concomitant]

REACTIONS (6)
  - Pulmonary embolism [None]
  - Diverticulitis [None]
  - Mobility decreased [None]
  - Bone pain [None]
  - Hypoacusis [None]
  - Constipation [None]
